FAERS Safety Report 8190695-1 (Version None)
Quarter: 2012Q1

REPORT INFORMATION
  Report Type: 
  Country: None (occurrence: None)
  Receive Date: 20120307
  Receipt Date: 20120224
  Transmission Date: 20120608
  Serious: Yes (Hospitalization)
  Sender: FDA-Public Use
  Company Number: GB-BRISTOL-MYERS SQUIBB COMPANY-16429383

PATIENT
  Age: 70 Year
  Sex: Male
  Weight: 54 kg

DRUGS (5)
  1. LANSOPRAZOLE [Concomitant]
     Route: 048
     Dates: start: 20120110
  2. CISPLATIN [Suspect]
     Indication: OESOPHAGEAL CARCINOMA
     Dosage: RECENT INFUSION:26-JAN-2012.
     Route: 042
     Dates: start: 20120105
  3. CETUXIMAB [Suspect]
     Indication: OESOPHAGEAL CARCINOMA
     Dosage: RECENT INFUSION:02-FEB-2012.
     Route: 042
     Dates: start: 20120105
  4. ACETAMINOPHEN AND CODEINE PHOSPHATE [Concomitant]
     Route: 048
     Dates: start: 20120110
  5. CAPECITABINE [Suspect]
     Indication: OESOPHAGEAL CARCINOMA
     Dosage: RECENT INFUSION:06-FEB-2012.TABLET
     Route: 048
     Dates: start: 20120105

REACTIONS (2)
  - PULMONARY EMBOLISM [None]
  - DYSPNOEA [None]
